FAERS Safety Report 24091989 (Version 1)
Quarter: 2024Q3

REPORT INFORMATION
  Report Type: Spontaneous
  Country: JP (occurrence: JP)
  Receive Date: 20240715
  Receipt Date: 20240715
  Transmission Date: 20241017
  Serious: Yes (Other)
  Sender: GUERBET
  Company Number: JP-GUERBETG_JAPAN-JP-20240091

PATIENT
  Age: 77 Year
  Sex: Male

DRUGS (2)
  1. LIPIODOL [Suspect]
     Active Substance: ETHIODIZED OIL
     Indication: Therapeutic embolisation
     Dosage: NBCA THAT WAS MIXED WITH LIPIODOL AT A RATIO OF 1:2
     Route: 013
  2. UNSPECIFIED INGREDIENT [Suspect]
     Active Substance: UNSPECIFIED INGREDIENT
     Indication: Therapeutic embolisation
     Dosage: LIPIODOL MIXED WITH NBCA AT A RATIO OF 1:2
     Route: 013

REACTIONS (2)
  - Foreign body reaction [Unknown]
  - Device dislocation [Unknown]
